FAERS Safety Report 4312391-0 (Version None)
Quarter: 2004Q1

REPORT INFORMATION
  Report Type: 
  Country: None (occurrence: None)
  Receive Date: 20040303
  Receipt Date: 20040225
  Transmission Date: 20041129
  Serious: Yes (Disabling, Other)
  Sender: FDA-Public Use
  Company Number: 2003-10-2421

PATIENT
  Age: 58 Year
  Sex: Female
  Weight: 74.8435 kg

DRUGS (7)
  1. REBETOL [Suspect]
     Indication: HEPATITIS C
     Dosage: 1000 MG ORAL
     Route: 048
     Dates: start: 20030131, end: 20031231
  2. PEGASYS [Suspect]
     Indication: HEPATITIS C
     Dosage: 180 MCG QW SUBCUTANEOUS
     Route: 058
     Dates: start: 20030131, end: 20031231
  3. WELLBUTRIN SR [Concomitant]
  4. SYNTHROID [Concomitant]
  5. ESTRATEST [Concomitant]
  6. ESTRATAB [Concomitant]
  7. PROMETRIUM [Concomitant]

REACTIONS (3)
  - DEAFNESS [None]
  - HAEMOCHROMATOSIS [None]
  - SERUM FERRITIN INCREASED [None]
